FAERS Safety Report 4414371-3 (Version None)
Quarter: 2004Q3

REPORT INFORMATION
  Report Type: 
  Country: None (occurrence: None)
  Receive Date: 20040701
  Receipt Date: 20040319
  Transmission Date: 20050211
  Serious: Yes (Hospitalization)
  Sender: FDA-Public Use
  Company Number: VISP-PR-0403S-0126(0)

PATIENT
  Sex: Female

DRUGS (1)
  1. VISIPAQUE [Suspect]
     Indication: CAROTID ARTERY STENOSIS
     Dosage: SINGLE DOSE, I.A.
     Route: 014
     Dates: start: 20040301, end: 20040301

REACTIONS (2)
  - AGITATION [None]
  - CONFUSIONAL STATE [None]
